FAERS Safety Report 19648826 (Version 1)
Quarter: 2021Q3

REPORT INFORMATION
  Report Type: Spontaneous
  Country: ES (occurrence: GB)
  Receive Date: 20210802
  Receipt Date: 20210802
  Transmission Date: 20211014
  Serious: Yes (Hospitalization, Other)
  Sender: FDA-Public Use
  Company Number: GB-BRECKENRIDGE PHARMACEUTICAL, INC.-2114556

PATIENT
  Age: 60 Year
  Sex: Male

DRUGS (5)
  1. PARACETAMOL [Concomitant]
     Active Substance: ACETAMINOPHEN
  2. LEVOTHYROXINE. [Concomitant]
     Active Substance: LEVOTHYROXINE
  3. ASPIRIN. [Concomitant]
     Active Substance: ASPIRIN
  4. OMEPRAZOLE. [Suspect]
     Active Substance: OMEPRAZOLE
     Indication: DYSPEPSIA
     Route: 048
  5. CODEINE PHOSPHATE [Suspect]
     Active Substance: CODEINE PHOSPHATE

REACTIONS (4)
  - Hypomagnesaemia [Recovered/Resolved]
  - Sinus bradycardia [Unknown]
  - Electrocardiogram PR prolongation [Unknown]
  - Electrocardiogram ST segment depression [Unknown]
